FAERS Safety Report 14259133 (Version 2)
Quarter: 2018Q1

REPORT INFORMATION
  Report Type: Report from Study
  Country: US (occurrence: US)
  Receive Date: 20171207
  Receipt Date: 20180208
  Transmission Date: 20180508
  Serious: Yes (Other)
  Sender: FDA-Public Use
  Company Number: US-ROCHE-2032566

PATIENT
  Age: 56 Year
  Sex: Male
  Weight: 64.8 kg

DRUGS (13)
  1. PEG-INTERFERON ALFA 2A [Suspect]
     Active Substance: PEGINTERFERON ALFA-2A
     Indication: NEOPLASM
     Dosage: DOSE: 180 MICROGRAMS SUBCUTANEOUS INJECTION Q3W FOR A TOTAL OF 6 CYCLES?DOSE OF LAST PEG-INTERFERON
     Route: 058
     Dates: start: 20170330
  2. HYDROCORTISONE. [Concomitant]
     Active Substance: HYDROCORTISONE
     Indication: HAEMORRHOIDS
     Route: 065
     Dates: start: 20170327
  3. DILTIAZEM. [Concomitant]
     Active Substance: DILTIAZEM
     Indication: RECTAL FISSURE
     Route: 065
     Dates: start: 20170818
  4. LIDOCAINE. [Concomitant]
     Active Substance: LIDOCAINE
     Indication: RECTAL FISSURE
     Route: 065
     Dates: start: 20170818
  5. BEVACIZUMAB. [Suspect]
     Active Substance: BEVACIZUMAB
     Indication: NEOPLASM
     Dosage: DATE OF MOST RECENT DOSE OF BEVACIZUMAB PRIOR TO AE ONSET: 1029 MG ON 14/SEP/2017 AT 11:40?THERAPY H
     Route: 042
     Dates: start: 20170330
  6. FISH OIL [Concomitant]
     Active Substance: FISH OIL
  7. LISINOPRIL. [Concomitant]
     Active Substance: LISINOPRIL
     Indication: HYPERTENSION
     Route: 065
     Dates: start: 20171026
  8. WITCH HAZEL. [Concomitant]
     Active Substance: WITCH HAZEL
     Indication: HAEMORRHOIDS
     Route: 065
     Dates: start: 20170601
  9. AMLODIPINE [Concomitant]
     Active Substance: AMLODIPINE BESYLATE
     Indication: HYPERTENSION
     Route: 065
     Dates: start: 20170327
  10. FAMOTIDINE. [Concomitant]
     Active Substance: FAMOTIDINE
     Indication: GASTROOESOPHAGEAL REFLUX DISEASE
  11. ATEZOLIZUMAB. [Suspect]
     Active Substance: ATEZOLIZUMAB
     Indication: NEOPLASM
     Dosage: 600 MILLIGRAMS (MG) OR 1200 MG BY IV INFUSION (AS PER PROTOCOL)?DATE OF MOST RECENT DOSE OF ATEZOLIZ
     Route: 042
     Dates: start: 20170330
  12. FERROUS SULFATE. [Concomitant]
     Active Substance: FERROUS SULFATE
     Indication: ANAEMIA
  13. EMLA [Concomitant]
     Active Substance: LIDOCAINE\PRILOCAINE
     Indication: CENTRAL VENOUS CATHETERISATION
     Route: 065
     Dates: start: 20170420

REACTIONS (1)
  - Type 2 diabetes mellitus [Recovering/Resolving]

NARRATIVE: CASE EVENT DATE: 20171116
